FAERS Safety Report 16373423 (Version 1)
Quarter: 2019Q2

REPORT INFORMATION
  Report Type: Spontaneous
  Country: GB (occurrence: GB)
  Receive Date: 20190530
  Receipt Date: 20190530
  Transmission Date: 20190711
  Serious: Yes (Other)
  Sender: FDA-Public Use
  Company Number: GB-TEVA-2019-GB-1056439

PATIENT

DRUGS (1)
  1. ONDANSETRON [Suspect]
     Active Substance: ONDANSETRON
     Dosage: 4 MILLIGRAM
     Route: 042

REACTIONS (3)
  - Oculogyric crisis [Unknown]
  - Locked-in syndrome [Unknown]
  - Opisthotonus [Unknown]

NARRATIVE: CASE EVENT DATE: 20190325
